FAERS Safety Report 18406822 (Version 4)
Quarter: 2021Q1

REPORT INFORMATION
  Report Type: Spontaneous
  Country: US (occurrence: US)
  Receive Date: 20201021
  Receipt Date: 20210319
  Transmission Date: 20210419
  Serious: Yes (Other)
  Sender: FDA-Public Use
  Company Number: US-JNJFOC-20201017924

PATIENT
  Age: 27 Year
  Sex: Female

DRUGS (8)
  1. STELARA [Suspect]
     Active Substance: USTEKINUMAB
     Dosage: WEEK 4
     Route: 058
  2. STELARA [Suspect]
     Active Substance: USTEKINUMAB
     Indication: HIDRADENITIS
     Dosage: WEEK 0
     Route: 058
  3. LAMICTAL [Concomitant]
     Active Substance: LAMOTRIGINE
     Indication: PRODUCT USED FOR UNKNOWN INDICATION
     Route: 065
  4. SPIRONOLACTONE. [Concomitant]
     Active Substance: SPIRONOLACTONE
     Indication: PRODUCT USED FOR UNKNOWN INDICATION
     Route: 065
  5. VICOPROFEN [Concomitant]
     Active Substance: HYDROCODONE BITARTRATE\IBUPROFEN
     Route: 065
  6. STELARA [Suspect]
     Active Substance: USTEKINUMAB
     Dosage: WEEK 12
     Route: 058
  7. FEXOFENADINE [Concomitant]
     Active Substance: FEXOFENADINE HYDROCHLORIDE
     Route: 065
  8. OMEPRAZOLE. [Concomitant]
     Active Substance: OMEPRAZOLE
     Route: 065

REACTIONS (3)
  - Product use in unapproved indication [Unknown]
  - Off label use [Unknown]
  - Myositis [Recovered/Resolved]
